FAERS Safety Report 26177092 (Version 1)
Quarter: 2025Q4

REPORT INFORMATION
  Report Type: Spontaneous
  Country: US (occurrence: US)
  Receive Date: 20251219
  Receipt Date: 20251219
  Transmission Date: 20260117
  Serious: Yes (Disabling, Other)
  Sender: SANOFI AVENTIS
  Company Number: US-SA-2025SA376649

PATIENT
  Age: 83 Year
  Sex: Female

DRUGS (2)
  1. DUPIXENT [Suspect]
     Active Substance: DUPILUMAB
     Indication: Product used for unknown indication
     Dosage: QOW
  2. COVID-19 VACCINE NOS [Suspect]
     Active Substance: COVID-19 VACCINE
     Route: 065

REACTIONS (7)
  - Glaucomatous optic neuropathy [Unknown]
  - Visual impairment [Unknown]
  - Condition aggravated [Unknown]
  - Diabetes mellitus [Unknown]
  - Toe amputation [Unknown]
  - Weight decreased [Unknown]
  - Eczema [Unknown]
